FAERS Safety Report 4859042-4 (Version None)
Quarter: 2005Q4

REPORT INFORMATION
  Report Type: 
  Country: None (occurrence: None)
  Receive Date: 20051219
  Receipt Date: 20050908
  Transmission Date: 20060501
  Serious: No
  Sender: FDA-Public Use
  Company Number: US-GLAXOSMITHKLINE-A0573447A

PATIENT
  Age: 40 Year
  Sex: Male

DRUGS (1)
  1. NICODERM CQ [Suspect]
     Dates: start: 20050904, end: 20050907

REACTIONS (7)
  - COLD SWEAT [None]
  - HEADACHE [None]
  - MALAISE [None]
  - NAUSEA [None]
  - NIGHT SWEATS [None]
  - NIGHTMARE [None]
  - STOMACH DISCOMFORT [None]
